FAERS Safety Report 9325648 (Version 1)
Quarter: 2013Q2

REPORT INFORMATION
  Report Type: Spontaneous
  Country: US (occurrence: None)
  Receive Date: 20130531
  Receipt Date: 20130531
  Transmission Date: 20140414
  Serious: Yes (Other)
  Sender: FDA-Public Use
  Company Number: None

PATIENT
  Age: 82 Year
  Sex: Female
  Weight: 63.5 kg

DRUGS (1)
  1. ISOSORBIDE [Suspect]
     Indication: ANGINA PECTORIS
     Dosage: 2 TAB
     Route: 048
     Dates: start: 20121207, end: 20130529

REACTIONS (2)
  - Medication residue present [None]
  - Product solubility abnormal [None]
